FAERS Safety Report 23118785 (Version 1)
Quarter: 2023Q4

REPORT INFORMATION
  Report Type: Spontaneous
  Country: CA (occurrence: CA)
  Receive Date: 20231028
  Receipt Date: 20231028
  Transmission Date: 20240109
  Serious: Yes (Hospitalization)
  Sender: FDA-Public Use
  Company Number: CA-002147023-NVSC2023CA223669

PATIENT
  Age: 56 Year
  Sex: Male

DRUGS (6)
  1. OMALIZUMAB [Suspect]
     Active Substance: OMALIZUMAB
     Indication: Product used for unknown indication
     Dosage: UNK
     Route: 065
  2. MEPOLIZUMAB [Suspect]
     Active Substance: MEPOLIZUMAB
     Indication: Asthma
     Dosage: 100 MG, Q4W (1 EVERY 4 WEEK )
     Route: 065
  3. OMNARIS [Suspect]
     Active Substance: CICLESONIDE
     Indication: Product used for unknown indication
     Dosage: UNK (SPRAY METERED DOSE)
     Route: 065
  4. ALBUTEROL SULFATE [Suspect]
     Active Substance: ALBUTEROL SULFATE
     Indication: Product used for unknown indication
     Dosage: UNK
     Route: 065
  5. SINGULAIR [Suspect]
     Active Substance: MONTELUKAST SODIUM
     Indication: Product used for unknown indication
     Dosage: 10 MG, QD
     Route: 065
  6. VENTOLIN [Concomitant]
     Active Substance: ALBUTEROL SULFATE
     Indication: Product used for unknown indication
     Dosage: UNK

REACTIONS (17)
  - Antinuclear antibody positive [Recovering/Resolving]
  - Blood test abnormal [Recovering/Resolving]
  - Bronchitis [Recovering/Resolving]
  - Chronic obstructive pulmonary disease [Recovering/Resolving]
  - Disease recurrence [Recovering/Resolving]
  - Gastrooesophageal reflux disease [Recovering/Resolving]
  - Memory impairment [Recovering/Resolving]
  - Mucosal inflammation [Recovering/Resolving]
  - Obstructive sleep apnoea syndrome [Recovering/Resolving]
  - Skin hypertrophy [Recovering/Resolving]
  - Sputum increased [Recovering/Resolving]
  - Tachycardia [Recovering/Resolving]
  - Dyspnoea [Recovering/Resolving]
  - Hypertension [Recovering/Resolving]
  - Asthma [Recovering/Resolving]
  - Asthenia [Recovering/Resolving]
  - Therapeutic response decreased [Recovering/Resolving]
